FAERS Safety Report 6748450-2 (Version None)
Quarter: 2010Q2

REPORT INFORMATION
  Report Type: 
  Country: None (occurrence: None)
  Receive Date: 20100527
  Receipt Date: 20100527
  Transmission Date: 20101027
  Serious: Yes (Hospitalization)
  Sender: FDA-Public Use
  Company Number: None

PATIENT
  Age: 84 Year
  Sex: Female

DRUGS (2)
  1. DILANTIN [Suspect]
     Indication: CONVULSION
     Dosage: 100MG BID ORAL
     Route: 048
     Dates: start: 20010101
  2. PHENOBARBITAL SRT [Suspect]
     Indication: CONVULSION
     Dosage: 60MG HS ORAL
     Route: 048
     Dates: start: 20010101

REACTIONS (3)
  - DEHYDRATION [None]
  - DRUG LEVEL INCREASED [None]
  - LETHARGY [None]
